FAERS Safety Report 5491598-3 (Version None)
Quarter: 2007Q4

REPORT INFORMATION
  Report Type: 
  Country: None (occurrence: None)
  Receive Date: 20071018
  Receipt Date: 20071018
  Transmission Date: 20080405
  Serious: Yes (Hospitalization)
  Sender: FDA-Public Use
  Company Number: None

PATIENT
  Age: 41 Year
  Sex: Male
  Weight: 60 kg

DRUGS (3)
  1. ACETAMINOPHEN [Suspect]
     Indication: SUICIDE ATTEMPT
     Dosage: 1-1.5 GM PO X 1
     Route: 048
     Dates: start: 20070824
  2. IBUPROFEN [Concomitant]
  3. FLEXERIL [Concomitant]

REACTIONS (3)
  - ANALGESIC DRUG LEVEL INCREASED [None]
  - INCORRECT DOSE ADMINISTERED [None]
  - SUICIDE ATTEMPT [None]
